FAERS Safety Report 7648641-2 (Version None)
Quarter: 2011Q3

REPORT INFORMATION
  Report Type: 
  Country: None (occurrence: None)
  Receive Date: 20110801
  Receipt Date: 20110721
  Transmission Date: 20111222
  Serious: Yes (Other)
  Sender: FDA-Public Use
  Company Number: PHFR2011GB04374

PATIENT
  Sex: Male

DRUGS (1)
  1. CLOZAPINE [Suspect]
     Indication: SCHIZOPHRENIA
     Route: 048
     Dates: start: 20110623

REACTIONS (4)
  - ASTHMA [None]
  - EOSINOPHIL COUNT INCREASED [None]
  - DYSPNOEA [None]
  - SINUS TACHYCARDIA [None]
